FAERS Safety Report 10242996 (Version 1)
Quarter: 2014Q2

REPORT INFORMATION
  Report Type: Spontaneous
  Country: US (occurrence: US)
  Receive Date: 20140618
  Receipt Date: 20140618
  Transmission Date: 20141212
  Serious: No
  Sender: FDA-Public Use
  Company Number: US-009507513-1405USA014671

PATIENT
  Age: 63 Year
  Sex: Male

DRUGS (5)
  1. PEGINTRON [Suspect]
     Indication: HEPATITIS
     Dosage: 0.5 ML, WEEKLY
     Route: 058
     Dates: start: 20140423
  2. RIBAVIRIN [Suspect]
     Dosage: UNK
     Route: 048
  3. SOVALDI [Suspect]
     Dosage: UNK
  4. METFORMIN [Concomitant]
  5. PRINIVIL [Concomitant]

REACTIONS (4)
  - Nausea [Not Recovered/Not Resolved]
  - Headache [Not Recovered/Not Resolved]
  - Nausea [Recovered/Resolved]
  - Headache [Recovered/Resolved]
